FAERS Safety Report 6190537-X (Version None)
Quarter: 2009Q2

REPORT INFORMATION
  Report Type: 
  Country: None (occurrence: None)
  Receive Date: 20090514
  Receipt Date: 20090508
  Transmission Date: 20091009
  Serious: Yes (Hospitalization, Other)
  Sender: FDA-Public Use
  Company Number: PHHY2009HU18021

PATIENT
  Age: 39 Year
  Sex: Male

DRUGS (3)
  1. VOLTAREN [Suspect]
     Indication: INTERVERTEBRAL DISC PROTRUSION
     Dosage: 75 MG, BID
  2. MELOXICAM [Concomitant]
     Indication: INTERVERTEBRAL DISC PROTRUSION
     Dosage: 15 MG, BID
  3. ANTIPLATELET DRUGS [Concomitant]
     Dosage: UNK

REACTIONS (1)
  - THROMBOSIS [None]
